FAERS Safety Report 6900904-1 (Version None)
Quarter: 2010Q3

REPORT INFORMATION
  Report Type: 
  Country: None (occurrence: None)
  Receive Date: 20100803
  Receipt Date: 20100727
  Transmission Date: 20110219
  Serious: Yes (Other)
  Sender: FDA-Public Use
  Company Number: A0873033A

PATIENT
  Age: 33 Year
  Sex: Female

DRUGS (13)
  1. COMBIVIR [Suspect]
     Indication: HIV INFECTION
     Route: 048
     Dates: start: 20050622, end: 20050716
  2. VIRAMUNE [Suspect]
     Indication: HIV INFECTION
     Route: 048
     Dates: start: 20050622, end: 20050716
  3. BACTRIM [Concomitant]
  4. CEFTRIAXONE [Concomitant]
  5. ETHAMBUTOL HYDROCHLORIDE [Concomitant]
  6. FERROUS SULFATE [Concomitant]
  7. FLUCONAZOLE [Concomitant]
  8. FOLIC ACID [Concomitant]
  9. IBUPROFEN [Concomitant]
  10. ISONIAZID [Concomitant]
  11. PYRAZINAMIDE [Concomitant]
  12. RANITIDINE [Concomitant]
  13. RIFAMPICIN [Concomitant]

REACTIONS (2)
  - DRUG EXPOSURE DURING PREGNANCY [None]
  - STILLBIRTH [None]
